FAERS Safety Report 5352278-8 (Version None)
Quarter: 2007Q2

REPORT INFORMATION
  Report Type: 
  Country: None (occurrence: None)
  Receive Date: 20070611
  Receipt Date: 20070605
  Transmission Date: 20071010
  Serious: Yes (Hospitalization)
  Sender: FDA-Public Use
  Company Number: FR-AVENTIS-200711120FR

PATIENT
  Age: 58 Year
  Sex: Female

DRUGS (4)
  1. TAXOTERE [Suspect]
     Indication: BREAST CANCER
     Route: 042
     Dates: start: 20070129, end: 20070129
  2. NORVIR [Suspect]
     Indication: HIV INFECTION
     Route: 048
  3. REYATAZ [Concomitant]
     Indication: HIV INFECTION
     Route: 048
  4. KIVEXA [Concomitant]
     Indication: HIV INFECTION
     Route: 048

REACTIONS (7)
  - BONE MARROW FAILURE [None]
  - DRUG INTERACTION [None]
  - ERYTHEMA MULTIFORME [None]
  - MUCOSAL INFLAMMATION [None]
  - RASH MACULO-PAPULAR [None]
  - SKIN TOXICITY [None]
  - WEIGHT DECREASED [None]
